FAERS Safety Report 8956107 (Version 3)
Quarter: 2013Q2

REPORT INFORMATION
  Report Type: Spontaneous
  Country: US (occurrence: US)
  Receive Date: 20121210
  Receipt Date: 20130403
  Transmission Date: 20140414
  Serious: Yes (Hospitalization, Other)
  Sender: FDA-Public Use
  Company Number: US-BAYER-2012-127816

PATIENT
  Age: 40 Year
  Sex: Female
  Weight: 117.91 kg

DRUGS (24)
  1. YASMIN [Suspect]
     Indication: MENSTRUAL CYCLE MANAGEMENT
     Dosage: UNK
     Dates: start: 200211, end: 200211
  2. YASMIN [Suspect]
     Indication: POLYCYSTIC OVARIES
  3. YASMIN [Suspect]
     Indication: CONTRACEPTION
  4. NASONEX [Concomitant]
  5. PAXIL CR [Concomitant]
     Dosage: 25 MG, UNK
  6. ALBUTEROL [Concomitant]
  7. CLARITIN-D [Concomitant]
  8. SINGULAIR [Concomitant]
     Dosage: 10 MG, UNK
  9. SEREVENT [Concomitant]
     Dosage: UNK, TWO] PUFFS BID (TWICE DAILY)
  10. OXYCODONE [Concomitant]
     Dosage: 10 MG, UNK
  11. OXYCODONE [Concomitant]
     Dosage: 625 MG, UNK
  12. SYNTHROID [Concomitant]
     Dosage: 112 MG, UNK
     Route: 048
  13. XANAX [Concomitant]
     Dosage: 1 MG, Q 12 HOURS P.R.N
  14. LISINOPRIL [Concomitant]
     Dosage: 20 MG, UNK
     Route: 048
  15. PRO-AIR [Concomitant]
     Dosage: UNK, P.R.N.
     Route: 045
  16. VICODIN [Concomitant]
     Dosage: UNK, P.R.N.
  17. LEVOTHYROXINE [Concomitant]
  18. WATER PILL UNKNOWN [Concomitant]
  19. BLOOD PRESSURE PILL [Concomitant]
  20. AMPICILLIN [Concomitant]
  21. CEFTRIAXONE [Concomitant]
  22. AUGMENTIN [Concomitant]
  23. OMEPRAZOLE [Concomitant]
     Dosage: UNK
  24. ADVAIR [Concomitant]
     Dosage: UNK
     Dates: start: 20101214

REACTIONS (12)
  - Deep vein thrombosis [Recovered/Resolved]
  - Deep vein thrombosis [Recovered/Resolved]
  - Deep vein thrombosis [Recovered/Resolved]
  - Vena cava thrombosis [Recovered/Resolved]
  - Pelvic venous thrombosis [Recovered/Resolved]
  - Thrombophlebitis superficial [Recovered/Resolved]
  - Injury [Recovered/Resolved]
  - Pain [Recovered/Resolved]
  - General physical health deterioration [Recovered/Resolved]
  - Anxiety [None]
  - Pain [None]
  - Emotional distress [None]
